FAERS Safety Report 23423480 (Version 1)
Quarter: 2024Q1

REPORT INFORMATION
  Report Type: Spontaneous
  Country: CA (occurrence: CA)
  Receive Date: 20240119
  Receipt Date: 20240119
  Transmission Date: 20240409
  Serious: Yes (Other)
  Sender: FDA-Public Use
  Company Number: CA-PFIZER INC-202300201180

PATIENT
  Age: 28 Year
  Sex: Female

DRUGS (2)
  1. RUXIENCE [Suspect]
     Active Substance: RITUXIMAB-PVVR
     Indication: Multiple sclerosis
     Dosage: 1000 MG, 1000 MG EVERY (Q) 2 WEEKS X 2 DOSES THEN 1000MG Q(EVERY) 6MONTHS)
     Route: 042
     Dates: start: 20230628
  2. RUXIENCE [Suspect]
     Active Substance: RITUXIMAB-PVVR
     Dosage: 1000 MG, 1000 MG EVERY (Q) 2 WEEKS X 2 DOSES THEN 1000MG Q(EVERY) 6MONTHS) , (SUBSEQUENT DAY 1)
     Route: 042
     Dates: start: 20240111

REACTIONS (7)
  - Throat irritation [Recovered/Resolved]
  - Throat tightness [Recovering/Resolving]
  - Ear pruritus [Recovering/Resolving]
  - Cough [Recovered/Resolved]
  - Oxygen saturation decreased [Unknown]
  - Chest discomfort [Recovering/Resolving]
  - Off label use [Unknown]

NARRATIVE: CASE EVENT DATE: 20240111
